FAERS Safety Report 20768041 (Version 1)
Quarter: 2022Q2

REPORT INFORMATION
  Report Type: Spontaneous
  Country: US (occurrence: US)
  Receive Date: 20220429
  Receipt Date: 20220429
  Transmission Date: 20220720
  Serious: Yes (Other)
  Sender: FDA-Public Use
  Company Number: US-GLENMARK PHARMACEUTICALS-2022GMK071784

PATIENT
  Age: 64 Year
  Sex: Male

DRUGS (1)
  1. TACROLIMUS [Suspect]
     Active Substance: TACROLIMUS
     Indication: Immunosuppression
     Dosage: 2 MILLIGRAM, BID
     Route: 060

REACTIONS (4)
  - Toxicity to various agents [Unknown]
  - Drug level increased [Unknown]
  - Generalised tonic-clonic seizure [Recovered/Resolved]
  - Blood creatinine increased [Unknown]
